FAERS Safety Report 23904206 (Version 2)
Quarter: 2024Q2

REPORT INFORMATION
  Report Type: Spontaneous
  Country: DE (occurrence: DE)
  Receive Date: 20240527
  Receipt Date: 20240607
  Transmission Date: 20240715
  Serious: No
  Sender: FDA-Public Use
  Company Number: DE-GERMAN-LIT/DEU/24/0006822

PATIENT

DRUGS (25)
  1. RUXOLITINIB [Suspect]
     Active Substance: RUXOLITINIB
     Indication: Large granular lymphocytosis
     Dosage: UNK
     Route: 065
  2. RUXOLITINIB [Suspect]
     Active Substance: RUXOLITINIB
     Indication: Haemophagocytic lymphohistiocytosis
  3. ETOPOSIDE [Suspect]
     Active Substance: ETOPOSIDE
     Indication: Haemophagocytic lymphohistiocytosis
     Dosage: UNK
     Route: 065
  4. ETOPOSIDE [Suspect]
     Active Substance: ETOPOSIDE
     Indication: Large granular lymphocytosis
  5. ETOPOSIDE [Suspect]
     Active Substance: ETOPOSIDE
     Indication: Large granular lymphocytosis
  6. DOXORUBICIN [Suspect]
     Active Substance: DOXORUBICIN
     Indication: Large granular lymphocytosis
     Dosage: UNK
     Route: 065
  7. DOXORUBICIN [Suspect]
     Active Substance: DOXORUBICIN
     Indication: Haemophagocytic lymphohistiocytosis
  8. DOXORUBICIN [Suspect]
     Active Substance: DOXORUBICIN
     Indication: Large granular lymphocytosis
  9. METHOTREXATE [Suspect]
     Active Substance: METHOTREXATE
     Indication: Haemophagocytic lymphohistiocytosis
     Dosage: UNK
     Route: 065
  10. METHOTREXATE [Suspect]
     Active Substance: METHOTREXATE
     Indication: Large granular lymphocytosis
  11. METHOTREXATE [Suspect]
     Active Substance: METHOTREXATE
     Indication: Large granular lymphocytosis
  12. VINCRISTINE [Suspect]
     Active Substance: VINCRISTINE
     Indication: Large granular lymphocytosis
     Dosage: UNK
     Route: 065
  13. VINCRISTINE [Suspect]
     Active Substance: VINCRISTINE
     Indication: Haemophagocytic lymphohistiocytosis
  14. VINCRISTINE [Suspect]
     Active Substance: VINCRISTINE
     Indication: Large granular lymphocytosis
  15. PREDNISONE [Suspect]
     Active Substance: PREDNISONE
     Indication: Haemophagocytic lymphohistiocytosis
     Dosage: UNK
     Route: 065
  16. PREDNISONE [Suspect]
     Active Substance: PREDNISONE
     Indication: Large granular lymphocytosis
  17. PREDNISONE [Suspect]
     Active Substance: PREDNISONE
     Indication: Large granular lymphocytosis
  18. ANAKINRA [Suspect]
     Active Substance: ANAKINRA
     Indication: Large granular lymphocytosis
     Dosage: UNK
     Route: 065
  19. ANAKINRA [Suspect]
     Active Substance: ANAKINRA
     Indication: Haemophagocytic lymphohistiocytosis
  20. ANAKINRA [Suspect]
     Active Substance: ANAKINRA
     Indication: Large granular lymphocytosis
  21. CYCLOPHOSPHAMIDE [Suspect]
     Active Substance: CYCLOPHOSPHAMIDE
     Indication: Large granular lymphocytosis
     Dosage: UNK
     Route: 065
  22. CYCLOPHOSPHAMIDE [Suspect]
     Active Substance: CYCLOPHOSPHAMIDE
     Indication: Haemophagocytic lymphohistiocytosis
  23. CYCLOPHOSPHAMIDE [Suspect]
     Active Substance: CYCLOPHOSPHAMIDE
     Indication: Large granular lymphocytosis
  24. DEXAMETHASONE [Suspect]
     Active Substance: DEXAMETHASONE
     Indication: Large granular lymphocytosis
     Dosage: UNK
     Route: 065
  25. DEXAMETHASONE [Suspect]
     Active Substance: DEXAMETHASONE
     Indication: Haemophagocytic lymphohistiocytosis

REACTIONS (1)
  - Drug ineffective for unapproved indication [Unknown]
